FAERS Safety Report 21560628 (Version 4)
Quarter: 2023Q1

REPORT INFORMATION
  Report Type: Spontaneous
  Country: CA (occurrence: CA)
  Receive Date: 20221107
  Receipt Date: 20230331
  Transmission Date: 20230418
  Serious: No
  Sender: FDA-Public Use
  Company Number: CA-PFIZER INC-202201246041

PATIENT
  Age: 16 Year
  Sex: Female

DRUGS (3)
  1. ABRILADA [Suspect]
     Active Substance: ADALIMUMAB-AFZB
     Indication: Hidradenitis
     Dosage: 160 MG WEEK 0, 80MG WEEK 2, THEN 40MG EVERY 1WEEK
     Route: 058
     Dates: start: 20220719, end: 20221007
  2. CLINDAMYCIN HYDROCHLORIDE [Concomitant]
     Active Substance: CLINDAMYCIN HYDROCHLORIDE
     Dosage: 1 DF, ONGOING,FOR 3 MONTHS,STARTED END OF MAY2022
     Dates: start: 202205
  3. RIFAMPIN [Concomitant]
     Active Substance: RIFAMPIN
     Dosage: 1 DF, ONGOING,FOR 3 MONTHS,STARTED END OF MAY2022
     Dates: start: 202205

REACTIONS (7)
  - Device defective [Unknown]
  - Device mechanical issue [Unknown]
  - Drug dose omission by device [Unknown]
  - Therapeutic response unexpected [Unknown]
  - Weight decreased [Not Recovered/Not Resolved]
  - Off label use [Unknown]
  - Product use issue [Unknown]

NARRATIVE: CASE EVENT DATE: 20221007
